FAERS Safety Report 16402631 (Version 2)
Quarter: 2019Q3

REPORT INFORMATION
  Report Type: Spontaneous
  Country: US (occurrence: US)
  Receive Date: 20190607
  Receipt Date: 20190724
  Transmission Date: 20191004
  Serious: No
  Sender: FDA-Public Use
  Company Number: US-TEVA-2019-US-1053120

PATIENT
  Sex: Female

DRUGS (5)
  1. DOXEPIN [Concomitant]
     Active Substance: DOXEPIN
     Route: 065
  2. CLONAZEPAM ACTAVIS [Suspect]
     Active Substance: CLONAZEPAM
     Indication: PANIC ATTACK
  3. ATENOLOL. [Concomitant]
     Active Substance: ATENOLOL
     Dosage: 50 MILLIGRAM DAILY;
  4. CLONAZEPAM ACTAVIS [Suspect]
     Active Substance: CLONAZEPAM
     Indication: ANXIETY
     Dates: start: 20190502
  5. KLONOPIN ROCHE [Concomitant]

REACTIONS (11)
  - Tremor [Unknown]
  - Feeling abnormal [Unknown]
  - Malaise [Unknown]
  - Fear [Unknown]
  - Headache [Unknown]
  - Insomnia [Unknown]
  - Agitation [Unknown]
  - Palpitations [Unknown]
  - Drug ineffective [Unknown]
  - Product substitution issue [Unknown]
  - Withdrawal syndrome [Unknown]
